FAERS Safety Report 9792050 (Version 1)
Quarter: 2014Q1

REPORT INFORMATION
  Report Type: Report from Study
  Country: TN (occurrence: TN)
  Receive Date: 20140102
  Receipt Date: 20140102
  Transmission Date: 20141002
  Serious: Yes (Death)
  Sender: FDA-Public Use
  Company Number: TN-SA-2013SA135562

PATIENT
  Age: 74 Year
  Sex: Female

DRUGS (10)
  1. PLAVIX [Suspect]
     Indication: ACUTE CORONARY SYNDROME
     Route: 048
     Dates: start: 20130213, end: 20131128
  2. PLAVIX [Suspect]
     Indication: STENT PLACEMENT
     Route: 048
     Dates: start: 20130213, end: 20131128
  3. PLAVIX [Suspect]
     Indication: ACUTE CORONARY SYNDROME
     Route: 048
     Dates: start: 20131129, end: 20131202
  4. PLAVIX [Suspect]
     Indication: STENT PLACEMENT
     Route: 048
     Dates: start: 20131129, end: 20131202
  5. ASPIRIN [Concomitant]
     Route: 048
     Dates: end: 20131202
  6. HYPOTEN [Concomitant]
     Route: 048
     Dates: end: 20131202
  7. AMLOR [Concomitant]
     Route: 048
     Dates: end: 20131202
  8. ATORVASTATIN [Concomitant]
     Route: 048
     Dates: end: 20131202
  9. PHYSIOTENS [Concomitant]
     Route: 048
     Dates: end: 20131202
  10. LANTUS [Concomitant]
     Route: 058
     Dates: end: 20131202

REACTIONS (1)
  - Sudden death [Fatal]
